FAERS Safety Report 16210084 (Version 1)
Quarter: 2019Q2

REPORT INFORMATION
  Report Type: Spontaneous
  Country: JP (occurrence: JP)
  Receive Date: 20190417
  Receipt Date: 20190417
  Transmission Date: 20190711
  Serious: Yes (Other)
  Sender: FDA-Public Use
  Company Number: JP-ASTRAZENECA-2019SE55164

PATIENT
  Age: 48 Year
  Sex: Male

DRUGS (1)
  1. IMFINZI [Suspect]
     Active Substance: DURVALUMAB
     Indication: NON-SMALL CELL LUNG CANCER
     Route: 041
     Dates: start: 20181209, end: 20190320

REACTIONS (2)
  - Metastases to central nervous system [Not Recovered/Not Resolved]
  - Malignant neoplasm progression [Unknown]

NARRATIVE: CASE EVENT DATE: 20190306
